FAERS Safety Report 18793485 (Version 1)
Quarter: 2021Q1

REPORT INFORMATION
  Report Type: Spontaneous
  Country: US (occurrence: US)
  Receive Date: 20210127
  Receipt Date: 20210127
  Transmission Date: 20210419
  Serious: No
  Sender: FDA-Public Use
  Company Number: None

PATIENT
  Age: 77 Year
  Sex: Male
  Weight: 72.6 kg

DRUGS (5)
  1. APIXABAN 5 MG [Concomitant]
     Active Substance: APIXABAN
     Dates: start: 20201103
  2. LIDOCAINE 1% 10 MG/ML INJECTION 5 ML [Concomitant]
     Dates: start: 20201120, end: 20210106
  3. DAPTOMYCIN. [Suspect]
     Active Substance: DAPTOMYCIN
     Indication: WOUND INFECTION
     Route: 041
     Dates: start: 20201207, end: 20210103
  4. MAGNESIUM SULFATE 1 G IN DEXTROSE 5% 1G/100ML [Concomitant]
     Dates: start: 20201211, end: 20201211
  5. MELATONIN 3 MG [Concomitant]
     Dates: start: 20201130

REACTIONS (2)
  - Blood creatine phosphokinase increased [None]
  - Drug hypersensitivity [None]

NARRATIVE: CASE EVENT DATE: 20201228
